FAERS Safety Report 15879058 (Version 2)
Quarter: 2019Q1

REPORT INFORMATION
  Report Type: Spontaneous
  Country: US (occurrence: US)
  Receive Date: 20190128
  Receipt Date: 20190308
  Transmission Date: 20190417
  Serious: Yes (Other)
  Sender: FDA-Public Use
  Company Number: US-TEVA-2019-US-1003334

PATIENT
  Sex: Female

DRUGS (2)
  1. ALPRAZOLAM MYLAN [Suspect]
     Active Substance: ALPRAZOLAM
     Route: 065
  2. ALPRAZOLAM ACTAVIS [Suspect]
     Active Substance: ALPRAZOLAM
     Route: 065

REACTIONS (3)
  - Swollen tongue [Unknown]
  - Lip swelling [Unknown]
  - Pharyngeal oedema [Unknown]
